FAERS Safety Report 20371358 (Version 1)
Quarter: 2022Q1

REPORT INFORMATION
  Report Type: Spontaneous
  Country: FR (occurrence: FR)
  Receive Date: 20220124
  Receipt Date: 20220124
  Transmission Date: 20220423
  Serious: Yes (Hospitalization, Other)
  Sender: FDA-Public Use
  Company Number: None

PATIENT
  Age: 58 Year
  Sex: Male

DRUGS (4)
  1. VIAGRA [Suspect]
     Active Substance: SILDENAFIL CITRATE
     Dosage: UNK
     Route: 048
     Dates: start: 2011, end: 202201
  2. TESTOSTERONE ACETATE [Suspect]
     Active Substance: TESTOSTERONE ACETATE
     Dosage: UNK
     Route: 048
     Dates: start: 2011, end: 202201
  3. ANABOL [CYPROHEPTADINE HYDROCHLORIDE] [Concomitant]
     Dosage: UNK
  4. ANADROL [Concomitant]
     Active Substance: OXYMETHOLONE
     Dosage: UNK

REACTIONS (3)
  - Ischaemic stroke [Not Recovered/Not Resolved]
  - Aphasia [Not Recovered/Not Resolved]
  - Self-medication [Unknown]

NARRATIVE: CASE EVENT DATE: 20211226
